FAERS Safety Report 5241370-4 (Version None)
Quarter: 2007Q1

REPORT INFORMATION
  Report Type: 
  Country: None (occurrence: None)
  Receive Date: 20070220
  Receipt Date: 20070126
  Transmission Date: 20070707
  Serious: Yes (Other)
  Sender: FDA-Public Use
  Company Number: FI-RB-005278-07

PATIENT
  Sex: Male

DRUGS (4)
  1. SUBOXONE [Suspect]
     Dates: start: 20040914
  2. XANOR [Concomitant]
     Indication: DRUG USE FOR UNKNOWN INDICATION
     Route: 048
  3. TENOX [Concomitant]
     Indication: DRUG USE FOR UNKNOWN INDICATION
     Dosage: 40MG QPM
     Route: 048
  4. SUBUTEX [Concomitant]
     Indication: DRUG THERAPY
     Dosage: DOSAGE UNKNOWN. TAKEN WITHOUT ANY SYMPTOMS.
     Route: 065

REACTIONS (3)
  - MASTICATION DISORDER [None]
  - PAIN [None]
  - TOOTH LOSS [None]
